FAERS Safety Report 23307351 (Version 2)
Quarter: 2025Q3

REPORT INFORMATION
  Report Type: Spontaneous
  Country: US (occurrence: US)
  Receive Date: 20231218
  Receipt Date: 20250703
  Transmission Date: 20251021
  Serious: Yes (Other)
  Sender: Steriscience PTE
  Company Number: US-STERISCIENCE B.V.-2023-ST-002324

PATIENT

DRUGS (2)
  1. METOPROLOL [Suspect]
     Active Substance: METOPROLOL
     Indication: Product used for unknown indication
     Route: 064
  2. CARGLUMIC ACID [Suspect]
     Active Substance: CARGLUMIC ACID
     Indication: Product used for unknown indication
     Route: 064

REACTIONS (3)
  - Premature baby [Unknown]
  - Foetal exposure during pregnancy [Unknown]
  - Exposure via breast milk [Unknown]
